FAERS Safety Report 14176951 (Version 1)
Quarter: 2017Q4

REPORT INFORMATION
  Report Type: Spontaneous
  Country: GB (occurrence: GB)
  Receive Date: 20171110
  Receipt Date: 20171110
  Transmission Date: 20180321
  Serious: Yes (Hospitalization, Disabling)
  Sender: FDA-Public Use
  Company Number: GB-CONCORDIA PHARMACEUTICALS INC.-GSH201602-001130

PATIENT
  Age: 66 Year
  Sex: Female

DRUGS (7)
  1. PREDNISOLONE. [Suspect]
     Active Substance: PREDNISOLONE
     Indication: PEMPHIGOID
     Dosage: LONG TERM - BEING GRADUALLY TAPERED OVER TIME.
     Route: 048
     Dates: end: 20151221
  2. PREDNISOLONE. [Suspect]
     Active Substance: PREDNISOLONE
     Indication: PEMPHIGOID
     Dosage: LONG TERM - BEING GRADUALLY TAPERED OVER TIME.
     Route: 048
     Dates: start: 20160104, end: 20160201
  3. AZATHIOPRINE. [Concomitant]
     Active Substance: AZATHIOPRINE
     Indication: PEMPHIGOID
     Route: 048
     Dates: start: 20151222
  4. PREDNISOLONE. [Suspect]
     Active Substance: PREDNISOLONE
     Indication: PEMPHIGOID
     Dosage: LONG TERM - BEING GRADUALLY TAPERED OVER TIME.
     Route: 048
     Dates: start: 20160216
  5. PREDNISOLONE. [Suspect]
     Active Substance: PREDNISOLONE
     Indication: PEMPHIGOID
     Dosage: LONG TERM - BEING GRADUALLY TAPERED OVER TIME.
     Route: 048
     Dates: start: 20160202, end: 20160215
  6. CITALOPRAM [Concomitant]
     Active Substance: CITALOPRAM HYDROBROMIDE
     Dosage: IN THE MORNING
     Route: 048
  7. PREDNISOLONE. [Suspect]
     Active Substance: PREDNISOLONE
     Indication: PEMPHIGOID
     Dosage: LONG TERM - BEING GRADUALLY TAPERED OVER TIME.
     Route: 048
     Dates: start: 20151222, end: 20160103

REACTIONS (2)
  - Hallucination [Recovered/Resolved]
  - Substance-induced psychotic disorder [Unknown]
